FAERS Safety Report 16777245 (Version 1)
Quarter: 2019Q4

REPORT INFORMATION
  Report Type: Spontaneous
  Country: US (occurrence: US)
  Receive Date: 20190905
  Receipt Date: 20190905
  Transmission Date: 20200122
  Serious: No
  Sender: FDA-Public Use
  Company Number: None

PATIENT
  Age: 41 Year
  Sex: Male

DRUGS (14)
  1. OLANZAPINE. [Concomitant]
     Active Substance: OLANZAPINE
  2. SINGULAIR [Concomitant]
     Active Substance: MONTELUKAST SODIUM
  3. ENBREL [Suspect]
     Active Substance: ETANERCEPT
     Dosage: ?          OTHER FREQUENCY:EVERY WEEK;?
     Route: 058
  4. COGENTIN [Concomitant]
     Active Substance: BENZTROPINE MESYLATE
  5. METHOTREXATE. [Concomitant]
     Active Substance: METHOTREXATE
  6. PROZAC [Concomitant]
     Active Substance: FLUOXETINE HYDROCHLORIDE
  7. VITAMIN D3 [Concomitant]
     Active Substance: CHOLECALCIFEROL
  8. HUMALOG [Concomitant]
     Active Substance: INSULIN LISPRO
  9. HYZAAR [Concomitant]
     Active Substance: HYDROCHLOROTHIAZIDE\LOSARTAN POTASSIUM
  10. PREVACID [Concomitant]
     Active Substance: LANSOPRAZOLE
  11. SIMVASTATIN. [Concomitant]
     Active Substance: SIMVASTATIN
  12. FISH OIL [Concomitant]
     Active Substance: FISH OIL
  13. GABAPENTIN. [Concomitant]
     Active Substance: GABAPENTIN
  14. TOUJEO [Concomitant]
     Active Substance: INSULIN GLARGINE

REACTIONS (3)
  - Surgery [None]
  - Therapy cessation [None]
  - Condition aggravated [None]

NARRATIVE: CASE EVENT DATE: 20190904
